FAERS Safety Report 7054784-7 (Version None)
Quarter: 2010Q4

REPORT INFORMATION
  Report Type: 
  Country: None (occurrence: None)
  Receive Date: 20101020
  Receipt Date: 20101007
  Transmission Date: 20110411
  Serious: Yes (Hospitalization)
  Sender: FDA-Public Use
  Company Number: DE-MYLANLABS-2009S1004740

PATIENT
  Age: 69 Year
  Sex: Male
  Weight: 90 kg

DRUGS (7)
  1. TAMSULOSIN [Suspect]
     Indication: BENIGN PROSTATIC HYPERPLASIA
     Route: 048
     Dates: start: 20080416, end: 20080417
  2. HYDROCHLOROTHIAZIDE [Suspect]
     Indication: CORONARY ARTERY DISEASE
     Route: 048
  3. AMLODIPINE [Suspect]
     Indication: CORONARY ARTERY DISEASE
     Route: 048
  4. PROVAS /00641902/ [Suspect]
     Indication: CORONARY ARTERY DISEASE
     Route: 048
  5. MOLSIDOMINE [Suspect]
     Indication: CORONARY ARTERY DISEASE
     Route: 048
  6. SIMVASTATIN [Concomitant]
     Indication: CORONARY ARTERY DISEASE
     Route: 048
  7. GODAMED TAH [Concomitant]
     Indication: CORONARY ARTERY DISEASE
     Route: 048

REACTIONS (1)
  - SYNCOPE [None]
